FAERS Safety Report 5261231-4 (Version None)
Quarter: 2007Q1

REPORT INFORMATION
  Report Type: 
  Country: None (occurrence: None)
  Receive Date: 20070309
  Receipt Date: 20070227
  Transmission Date: 20070707
  Serious: Yes (Hospitalization)
  Sender: FDA-Public Use
  Company Number: GB-PFIZER INC-2007016033

PATIENT
  Sex: Male

DRUGS (4)
  1. RIFABUTIN [Suspect]
     Indication: MYCOBACTERIUM AVIUM COMPLEX INFECTION
  2. FLUCONAZOLE [Concomitant]
     Indication: HIV TEST
     Dosage: DAILY DOSE:400MG
  3. FLUCONAZOLE [Concomitant]
     Indication: MENINGITIS STREPTOCOCCAL
  4. DRUG, UNSPECIFIED [Concomitant]

REACTIONS (3)
  - ENDOPHTHALMITIS [None]
  - OCULAR HYPERAEMIA [None]
  - UVEITIS [None]
